FAERS Safety Report 23217155 (Version 4)
Quarter: 2024Q1

REPORT INFORMATION
  Report Type: Spontaneous
  Country: AT (occurrence: AT)
  Receive Date: 20231122
  Receipt Date: 20240304
  Transmission Date: 20240409
  Serious: Yes (Hospitalization, Other)
  Sender: FDA-Public Use
  Company Number: AT-ROCHE-2454667

PATIENT
  Age: 68 Year
  Sex: Female
  Weight: 89 kg

DRUGS (88)
  1. ANASTROZOLE [Suspect]
     Active Substance: ANASTROZOLE
     Indication: Breast cancer
     Dosage: 1 MG, QD
     Route: 048
     Dates: start: 20170324, end: 20180514
  2. ANASTROZOLE [Suspect]
     Active Substance: ANASTROZOLE
     Indication: Breast cancer metastatic
     Dosage: MOST RECENT DOSE PRIOR TO AE 14/MAY/2018
     Route: 048
     Dates: start: 20170324
  3. ARIMIDEX [Suspect]
     Active Substance: ANASTROZOLE
     Indication: Product used for unknown indication
     Dosage: 132.78 MG, Q3W
     Route: 042
     Dates: start: 20180926, end: 20180926
  4. DOCETAXEL [Suspect]
     Active Substance: DOCETAXEL\DOCETAXEL ANHYDROUS
     Indication: Breast cancer metastatic
     Dosage: 106.220MG TIW
     Route: 042
     Dates: start: 20181017, end: 20181017
  5. DOCETAXEL [Suspect]
     Active Substance: DOCETAXEL\DOCETAXEL ANHYDROUS
     Dosage: 132.780MG TIW
     Route: 042
     Dates: start: 20180926, end: 20180926
  6. DOCETAXEL [Suspect]
     Active Substance: DOCETAXEL\DOCETAXEL ANHYDROUS
     Indication: Breast cancer
     Dosage: 134.320MG TIW
     Route: 042
     Dates: start: 20180723, end: 20180904
  7. DOCETAXEL [Suspect]
     Active Substance: DOCETAXEL\DOCETAXEL ANHYDROUS
     Dosage: 137 MG, Q3W
     Route: 042
     Dates: start: 20180608, end: 20180608
  8. DOCETAXEL [Suspect]
     Active Substance: DOCETAXEL\DOCETAXEL ANHYDROUS
     Dosage: 137.000MG TIW
     Route: 042
     Dates: start: 20180608, end: 20180608
  9. DOCETAXEL [Suspect]
     Active Substance: DOCETAXEL\DOCETAXEL ANHYDROUS
     Dosage: UNK
     Route: 065
     Dates: start: 20181017
  10. DENOSUMAB [Suspect]
     Active Substance: DENOSUMAB
     Dosage: 120 MG
     Route: 042
     Dates: start: 20210302
  11. DENOSUMAB [Suspect]
     Active Substance: DENOSUMAB
     Indication: Breast cancer
     Dosage: 120 MG
     Route: 058
     Dates: start: 20170505, end: 20180329
  12. DENOSUMAB [Suspect]
     Active Substance: DENOSUMAB
     Indication: Breast cancer metastatic
     Dosage: 120 MG
     Route: 058
     Dates: start: 20200310, end: 20201127
  13. DENOSUMAB [Suspect]
     Active Substance: DENOSUMAB
     Dosage: MOST RECENT DOSE PRIOR TO THE EVENT: 02/MAR/2021
     Route: 058
     Dates: start: 20170505, end: 20230329
  14. FULVESTRANT [Suspect]
     Active Substance: FULVESTRANT
     Indication: Breast cancer
     Dosage: 500 MG, Q2W (MOST RECENT DOSE PRIOR TO THE EVENT: 26 DEC 2018)
     Route: 030
     Dates: start: 20181128, end: 20181226
  15. FULVESTRANT [Suspect]
     Active Substance: FULVESTRANT
     Dosage: ONGOING
     Route: 030
     Dates: start: 20181226
  16. FASLODEX [Suspect]
     Active Substance: FULVESTRANT
     Indication: Product used for unknown indication
     Dosage: 1 MG, QD
     Route: 048
     Dates: start: 20170324, end: 20180514
  17. HERCEPTIN [Suspect]
     Active Substance: TRASTUZUMAB
     Dosage: 420.000MG TIW
     Route: 042
     Dates: start: 20181107, end: 20181107
  18. HERCEPTIN [Suspect]
     Active Substance: TRASTUZUMAB
     Dosage: 438.000MG TIW
     Route: 042
     Dates: start: 20180926, end: 20180926
  19. HERCEPTIN [Suspect]
     Active Substance: TRASTUZUMAB
     Dosage: 450.000MG TIW
     Route: 042
     Dates: start: 20180723, end: 20180904
  20. HERCEPTIN [Suspect]
     Active Substance: TRASTUZUMAB
     Indication: HER2 positive breast cancer
     Dosage: 462.000MG TIW
     Route: 042
     Dates: start: 20180608, end: 20180608
  21. HERCEPTIN [Suspect]
     Active Substance: TRASTUZUMAB
     Dosage: 474.000MG TIW
     Route: 042
     Dates: start: 20171213, end: 20180514
  22. HERCEPTIN [Suspect]
     Active Substance: TRASTUZUMAB
     Dosage: 480.000MG TIW
     Route: 042
     Dates: start: 20170828, end: 20171030
  23. HERCEPTIN [Suspect]
     Active Substance: TRASTUZUMAB
     Dosage: 534.000MG TIW
     Route: 042
     Dates: start: 20170414, end: 20170619
  24. HERCEPTIN [Suspect]
     Active Substance: TRASTUZUMAB
     Dosage: 534.000MG TIW
     Route: 042
     Dates: start: 20170714, end: 20170804
  25. HERCEPTIN [Suspect]
     Active Substance: TRASTUZUMAB
     Dosage: 712.000MG TIW
     Route: 042
     Dates: start: 20170324, end: 20170324
  26. ONTRUZANT [Suspect]
     Active Substance: TRASTUZUMAB-DTTB
     Indication: Product used for unknown indication
     Dosage: UNK
     Route: 065
     Dates: start: 20181017
  27. PERJETA [Suspect]
     Active Substance: PERTUZUMAB
     Indication: Product used for unknown indication
     Dosage: UNK
     Route: 065
  28. PERTUZUMAB [Suspect]
     Active Substance: PERTUZUMAB
     Dosage: ONGOING
     Route: 042
     Dates: start: 20180723
  29. PERTUZUMAB [Suspect]
     Active Substance: PERTUZUMAB
     Dosage: 420.000MG TIW
     Route: 042
     Dates: start: 20171213, end: 20180608
  30. PERTUZUMAB [Suspect]
     Active Substance: PERTUZUMAB
     Dosage: 420.000MG
     Route: 042
     Dates: start: 20170414, end: 20170619
  31. PERTUZUMAB [Suspect]
     Active Substance: PERTUZUMAB
     Dosage: 420.000MG
     Route: 042
     Dates: start: 20170714, end: 20171030
  32. PERTUZUMAB [Suspect]
     Active Substance: PERTUZUMAB
     Dosage: 840 MG, Q3W, (MOST RECENT DOSE PRIOR TO THE EVENT: 23 JUL 2018 )
     Route: 042
     Dates: start: 20170324, end: 20170324
  33. PERTUZUMAB [Suspect]
     Active Substance: PERTUZUMAB
     Indication: Breast cancer metastatic
     Dosage: 840.000MG TIW
     Route: 042
     Dates: start: 20170324, end: 20170324
  34. PERTUZUMAB [Suspect]
     Active Substance: PERTUZUMAB
     Dosage: 840.000MG TIW
     Route: 042
     Dates: start: 20170714
  35. PHESGO [Suspect]
     Active Substance: HYALURONIDASE-ZZXF\PERTUZUMAB\TRASTUZUMAB
     Indication: HER2 positive breast cancer
     Dosage: 10 DF, QW
     Route: 058
     Dates: start: 20220218, end: 20220701
  36. TAXOTERE [Suspect]
     Active Substance: DOCETAXEL
     Indication: HER2 positive breast cancer
     Dosage: UNK
     Route: 065
     Dates: start: 20171120, end: 20190615
  37. TRASTUZUMAB [Suspect]
     Active Substance: TRASTUZUMAB
     Dosage: 438 MG, TIW
     Route: 042
     Dates: start: 20181017, end: 20181017
  38. TRASTUZUMAB [Suspect]
     Active Substance: TRASTUZUMAB
     Dosage: 712.000MG TIW
     Route: 042
     Dates: start: 20170324, end: 20170324
  39. TRASTUZUMAB [Suspect]
     Active Substance: TRASTUZUMAB
     Dosage: 408 MG, Q3W
     Route: 042
     Dates: start: 20210424
  40. TRASTUZUMAB [Suspect]
     Active Substance: TRASTUZUMAB
     Dosage: ON 24/APR/2020, MOST RECENT DOSE
     Route: 042
     Dates: start: 20181219
  41. TRASTUZUMAB [Suspect]
     Active Substance: TRASTUZUMAB
     Indication: Breast cancer metastatic
     Dosage: 420 MG, TIW
     Route: 042
     Dates: start: 20181128, end: 20181128
  42. TRASTUZUMAB [Suspect]
     Active Substance: TRASTUZUMAB
     Dosage: 438.000MG TIW
     Route: 042
     Dates: start: 20180926, end: 20180926
  43. TRASTUZUMAB [Suspect]
     Active Substance: TRASTUZUMAB
     Dosage: 450.000MG TIW
     Route: 042
     Dates: start: 20180723, end: 20180904
  44. TRASTUZUMAB [Suspect]
     Active Substance: TRASTUZUMAB
     Dosage: 462.000MG TIW
     Route: 042
     Dates: start: 20180608, end: 20180608
  45. TRASTUZUMAB [Suspect]
     Active Substance: TRASTUZUMAB
     Dosage: 474.000MG TIW
     Route: 042
     Dates: start: 20171213, end: 20180514
  46. TRASTUZUMAB [Suspect]
     Active Substance: TRASTUZUMAB
     Dosage: 480.000MG TIW
     Route: 042
     Dates: start: 20170828, end: 20171030
  47. TRASTUZUMAB [Suspect]
     Active Substance: TRASTUZUMAB
     Dosage: 534.000MG TIW
     Route: 042
     Dates: start: 20170414, end: 20170619
  48. TRASTUZUMAB [Suspect]
     Active Substance: TRASTUZUMAB
     Dosage: 534.000MG TIW
     Route: 042
     Dates: start: 20170714, end: 20170804
  49. TRASTUZUMAB [Suspect]
     Active Substance: TRASTUZUMAB
     Dosage: 712 MG, Q3W (MOST RECENT DOSE PRIOR TO THE EVENT: 07 NOV 2018)
     Route: 042
     Dates: start: 20170324, end: 20170324
  50. TRASTUZUMAB [Suspect]
     Active Substance: TRASTUZUMAB
     Dosage: 408 MG, EVERY 3 WEEKS (ON 24/APR/2020, MOST RECENT DOSE
     Route: 042
     Dates: end: 20210424
  51. TRASTUZUMAB [Suspect]
     Active Substance: TRASTUZUMAB
     Dosage: TIW
     Route: 042
     Dates: start: 20181219
  52. TRASTUZUMAB [Suspect]
     Active Substance: TRASTUZUMAB
     Dosage: TIW
     Route: 042
     Dates: start: 20200515
  53. TRASTUZUMAB [Suspect]
     Active Substance: TRASTUZUMAB
     Dosage: UNK
     Route: 058
     Dates: start: 20181017
  54. ASPIRIN [Concomitant]
     Active Substance: ASPIRIN
     Indication: Product used for unknown indication
     Dosage: UNK
     Route: 065
     Dates: start: 20171120, end: 20190616
  55. AMLODIPINE [Concomitant]
     Active Substance: AMLODIPINE BESYLATE
     Indication: Product used for unknown indication
     Dosage: UNK
     Route: 065
  56. AVELOX [Concomitant]
     Active Substance: MOXIFLOXACIN HYDROCHLORIDE
     Indication: Product used for unknown indication
     Dosage: UNK
     Route: 065
  57. CALCIUM CARBONATE\CHOLECALCIFEROL [Concomitant]
     Active Substance: CALCIUM CARBONATE\CHOLECALCIFEROL
     Indication: Product used for unknown indication
     Dosage: UNK
     Route: 065
     Dates: start: 20170515, end: 20190615
  58. CLINDAMYCIN [Concomitant]
     Active Substance: CLINDAMYCIN
     Indication: Product used for unknown indication
     Dosage: UNK
     Route: 065
  59. BISOPROLOL FUMARATE [Concomitant]
     Active Substance: BISOPROLOL FUMARATE
     Indication: Hypertension
     Dosage: UNK
     Route: 065
     Dates: start: 20180814
  60. CORTISONE [Concomitant]
     Active Substance: CORTISONE
     Indication: Product used for unknown indication
     Dosage: UNK
     Route: 065
  61. DEXABENE [Concomitant]
     Indication: Product used for unknown indication
     Dosage: UNK
     Route: 065
     Dates: start: 20181107
  62. DEXAMETHASONE [Concomitant]
     Active Substance: DEXAMETHASONE
     Indication: Product used for unknown indication
     Dosage: UNK
     Route: 065
  63. ENTRESTO [Concomitant]
     Active Substance: SACUBITRIL\VALSARTAN
     Indication: Product used for unknown indication
     Dosage: UNK
     Route: 065
  64. DIMETHINDENE [Concomitant]
     Active Substance: DIMETHINDENE
     Indication: Product used for unknown indication
     Dosage: UNK
     Route: 065
     Dates: start: 20170414
  65. FERINJECT [Concomitant]
     Active Substance: FERRIC CARBOXYMALTOSE
     Indication: Product used for unknown indication
     Dosage: UNK
     Route: 065
     Dates: start: 20190826, end: 20190826
  66. FERINJECT [Concomitant]
     Active Substance: FERRIC CARBOXYMALTOSE
     Dosage: ONGOING = NOT CHECKED
     Route: 065
     Dates: start: 20220218, end: 20220218
  67. DEXAMETHASONE [Concomitant]
     Active Substance: DEXAMETHASONE
     Indication: Product used for unknown indication
     Dosage: UNK
     Route: 065
     Dates: start: 20180723, end: 20181017
  68. DEXAMETHASONE [Concomitant]
     Active Substance: DEXAMETHASONE
     Dosage: UNK
     Route: 065
     Dates: start: 20181017
  69. DAPAGLIFLOZIN [Concomitant]
     Active Substance: DAPAGLIFLOZIN
     Indication: Product used for unknown indication
     Dosage: UNK
     Route: 065
  70. FOSTER [Concomitant]
     Active Substance: BECLOMETHASONE\FORMOTEROL
     Indication: Dyspnoea
     Dosage: UNK
     Route: 065
     Dates: start: 20171120
  71. INSPRA [Concomitant]
     Active Substance: EPLERENONE
     Indication: Product used for unknown indication
     Dosage: UNK
     Route: 065
  72. KYTRIL [Concomitant]
     Active Substance: GRANISETRON HYDROCHLORIDE
     Indication: Product used for unknown indication
     Dosage: ONGOING = CHECKED
     Route: 065
     Dates: start: 20180608, end: 20181017
  73. Lannapril plus [Concomitant]
     Indication: Product used for unknown indication
     Dosage: UNK
     Route: 065
     Dates: start: 20210129, end: 20221124
  74. LOVENOX [Concomitant]
     Active Substance: ENOXAPARIN SODIUM
     Indication: Product used for unknown indication
     Dosage: UNK
     Route: 065
  75. MEROPENEM [Concomitant]
     Active Substance: MEROPENEM
     Indication: Product used for unknown indication
     Dosage: UNK
     Route: 065
  76. ACETAMINOPHEN [Concomitant]
     Active Substance: ACETAMINOPHEN
     Indication: Product used for unknown indication
     Dosage: UNK
     Route: 065
     Dates: start: 20180715
  77. POLYETHYLENE GLYCOL 3350\POTASSIUM CHLORIDE\SODIUM BICARBONATE\SODIUM [Concomitant]
     Active Substance: POLYETHYLENE GLYCOL 3350\POTASSIUM CHLORIDE\SODIUM BICARBONATE\SODIUM CHLORIDE
     Indication: Product used for unknown indication
     Dosage: UNK
     Route: 065
     Dates: start: 20180715
  78. Novalgin [Concomitant]
     Indication: Dyspnoea exertional
     Dosage: UNK
     Route: 065
     Dates: start: 20180715
  79. PANTOPRAZOLE SODIUM [Concomitant]
     Active Substance: PANTOPRAZOLE SODIUM
     Indication: Product used for unknown indication
     Dosage: UNK
     Route: 065
  80. RAMIPRIL [Concomitant]
     Active Substance: RAMIPRIL
     Indication: Product used for unknown indication
     Dosage: UNK
     Route: 065
  81. DEXIBUPROFEN [Concomitant]
     Active Substance: DEXIBUPROFEN
     Indication: Product used for unknown indication
     Route: 065
  82. TORSEMIDE [Concomitant]
     Active Substance: TORSEMIDE
     Indication: Hypertension
     Dosage: UNK
     Route: 065
     Dates: start: 20180214
  83. RAMIPRIL [Concomitant]
     Active Substance: RAMIPRIL
     Indication: Product used for unknown indication
     Dosage: UNK
     Route: 065
  84. HYDROCHLOROTHIAZIDE\RAMIPRIL [Concomitant]
     Active Substance: HYDROCHLOROTHIAZIDE\RAMIPRIL
     Indication: Product used for unknown indication
     Dosage: ONGOING = CHECKED
     Route: 065
     Dates: start: 20210129
  85. RANITIDINE HYDROCHLORIDE [Concomitant]
     Active Substance: RANITIDINE HYDROCHLORIDE
     Indication: Product used for unknown indication
     Dosage: UNK
     Route: 065
     Dates: start: 20170414, end: 20191119
  86. METHYLPREDNISOLONE [Concomitant]
     Active Substance: METHYLPREDNISOLONE
     Indication: Product used for unknown indication
     Dosage: UNK
     Route: 065
     Dates: start: 20191210
  87. VIBRAMYCIN [Concomitant]
     Active Substance: DOXYCYCLINE
     Indication: Sinusitis
     Dosage: ONGOING = NOT CHECKED
     Route: 065
     Dates: start: 20180417, end: 20180615
  88. XGEVA [Concomitant]
     Active Substance: DENOSUMAB
     Indication: Product used for unknown indication
     Dosage: UNK
     Route: 065
     Dates: start: 20181017

REACTIONS (20)
  - Dyspnoea exertional [Recovered/Resolved]
  - Pulmonary oedema [Recovered/Resolved]
  - Polyneuropathy [Unknown]
  - Osteonecrosis of jaw [Recovered/Resolved]
  - Hypertension [Recovered/Resolved]
  - Iron deficiency [Recovered/Resolved]
  - Diarrhoea [Recovered/Resolved]
  - Sinusitis [Recovered/Resolved]
  - Paraesthesia [Recovered/Resolved]
  - Flank pain [Recovered/Resolved]
  - Hypertension [Recovered/Resolved]
  - Dyspnoea [Recovered/Resolved]
  - Fatigue [Recovered/Resolved]
  - Renal pain [Recovered/Resolved]
  - Dysgeusia [Recovered/Resolved]
  - Dyspnoea [Recovered/Resolved]
  - Ejection fraction decreased [Recovered/Resolved]
  - Ejection fraction decreased [Recovered/Resolved]
  - Ejection fraction decreased [Recovered/Resolved]
  - Pain in jaw [Recovered/Resolved]

NARRATIVE: CASE EVENT DATE: 20171030
